FAERS Safety Report 19377465 (Version 8)
Quarter: 2022Q2

REPORT INFORMATION
  Report Type: Report from Study
  Country: US (occurrence: US)
  Receive Date: 20210605
  Receipt Date: 20220505
  Transmission Date: 20220721
  Serious: Yes (Other)
  Sender: FDA-Public Use
  Company Number: NVSC2021US118116

PATIENT
  Sex: Male

DRUGS (2)
  1. ENTRESTO [Suspect]
     Active Substance: SACUBITRIL\VALSARTAN
     Indication: Cardiac failure chronic
     Dosage: UNK
     Route: 065
  2. ENTRESTO [Suspect]
     Active Substance: SACUBITRIL\VALSARTAN
     Dosage: UNK
     Route: 065

REACTIONS (8)
  - Heart rate decreased [Unknown]
  - Limb injury [Unknown]
  - Lymphoedema [Unknown]
  - Sinusitis [Unknown]
  - Paraesthesia [Unknown]
  - Throat clearing [Unknown]
  - Upper-airway cough syndrome [Unknown]
  - Weight increased [Unknown]
